FAERS Safety Report 9736987 (Version 3)
Quarter: 2015Q3

REPORT INFORMATION
  Report Type: Spontaneous
  Country: US (occurrence: US)
  Receive Date: 20131206
  Receipt Date: 20150804
  Transmission Date: 20151125
  Serious: No
  Sender: FDA-Public Use
  Company Number: US-GILEAD-2009-0022678

PATIENT
  Age: 88 Year
  Sex: Female
  Weight: 50.8 kg

DRUGS (13)
  1. COREG [Concomitant]
     Active Substance: CARVEDILOL
  2. LEXAPRO [Concomitant]
     Active Substance: ESCITALOPRAM OXALATE
  3. ZEMPLAR [Suspect]
     Active Substance: PARICALCITOL
  4. SPIRIVA [Concomitant]
     Active Substance: TIOTROPIUM BROMIDE MONOHYDRATE
  5. LETAIRIS [Suspect]
     Active Substance: AMBRISENTAN
     Indication: PULMONARY ARTERIAL HYPERTENSION
     Route: 048
     Dates: start: 20090604
  6. LASIX [Concomitant]
     Active Substance: FUROSEMIDE
  7. NAMENDA [Concomitant]
     Active Substance: MEMANTINE HYDROCHLORIDE
  8. PROCRIT [Concomitant]
     Active Substance: ERYTHROPOIETIN
  9. MULTIVITAMIN [Concomitant]
     Active Substance: VITAMINS
  10. ASPIRIN. [Concomitant]
     Active Substance: ASPIRIN
  11. SLO-MAG (MAGNESIUM CHLORIDE ANHYDROUS) [Suspect]
     Active Substance: MAGNESIUM CHLORIDE ANHYDROUS
  12. TRILIPIX [Suspect]
     Active Substance: FENOFIBRIC ACID
  13. EXELON [Concomitant]
     Active Substance: RIVASTIGMINE TARTRATE

REACTIONS (1)
  - Dizziness [Unknown]
